FAERS Safety Report 4917193-X (Version None)
Quarter: 2006Q1

REPORT INFORMATION
  Report Type: 
  Country: None (occurrence: None)
  Receive Date: 20060221
  Receipt Date: 20060210
  Transmission Date: 20060701
  Serious: Yes (Hospitalization)
  Sender: FDA-Public Use
  Company Number: 2006PK00346

PATIENT
  Age: 33 Year
  Sex: Male

DRUGS (9)
  1. SEROQUEL [Suspect]
     Route: 048
     Dates: start: 20051022, end: 20051024
  2. SEROQUEL [Suspect]
     Route: 048
     Dates: start: 20051025, end: 20051122
  3. SEROQUEL [Suspect]
     Route: 048
     Dates: start: 20051123
  4. DEPAKENE [Interacting]
     Route: 048
     Dates: start: 20051206, end: 20051208
  5. DEPAKENE [Interacting]
     Route: 048
     Dates: start: 20051209, end: 20051210
  6. DEPAKENE [Interacting]
     Route: 048
     Dates: start: 20051211
  7. CLOPIXOL [Concomitant]
     Route: 048
     Dates: start: 20050508, end: 20051205
  8. NOZINAN [Concomitant]
     Route: 048
     Dates: start: 20051204, end: 20051206
  9. VALIUM [Concomitant]
     Route: 048
     Dates: start: 20051209

REACTIONS (6)
  - DELIRIUM [None]
  - DISORIENTATION [None]
  - DRUG INTERACTION [None]
  - FEAR [None]
  - HALLUCINATION, VISUAL [None]
  - INSOMNIA [None]
